FAERS Safety Report 16068049 (Version 1)
Quarter: 2019Q1

REPORT INFORMATION
  Report Type: Report from Study
  Country: DE (occurrence: DE)
  Receive Date: 20190313
  Receipt Date: 20190313
  Transmission Date: 20190418
  Serious: Yes (Hospitalization, Other)
  Sender: FDA-Public Use
  Company Number: DE-MYLANLABS-2019M1023142

PATIENT
  Age: 54 Year
  Sex: Male

DRUGS (3)
  1. METHOTREXATE. [Suspect]
     Active Substance: METHOTREXATE
     Indication: RHEUMATOID ARTHRITIS
     Dosage: 25 MILLIGRAM, QW
     Route: 065
  2. RITUXIMAB. [Suspect]
     Active Substance: RITUXIMAB
     Indication: RHEUMATOID ARTHRITIS
     Dosage: LAST ADMINISTRATION OF 1000 MG MABTHERA PRIOR TO THE EVENT WAS GIVEN ON 15-JAN-2017
     Route: 042
  3. TOCILIZUMAB. [Suspect]
     Active Substance: TOCILIZUMAB
     Indication: RHEUMATOID ARTHRITIS
     Dosage: 162 MILLIGRAM
     Route: 058
     Dates: end: 201712

REACTIONS (11)
  - Osteochondrosis [Unknown]
  - Axonal neuropathy [Unknown]
  - Cubital tunnel syndrome [Unknown]
  - Multifocal motor neuropathy [Unknown]
  - Temporal arteritis [Unknown]
  - Endocarditis [Unknown]
  - Peripheral arterial occlusive disease [Unknown]
  - Wound [Unknown]
  - Vasculitis [Unknown]
  - Intervertebral disc protrusion [Unknown]
  - Osteoarthritis [Unknown]

NARRATIVE: CASE EVENT DATE: 20170901
